FAERS Safety Report 7308075-7 (Version None)
Quarter: 2011Q1

REPORT INFORMATION
  Report Type: 
  Country: None (occurrence: None)
  Receive Date: 20110223
  Receipt Date: 20100831
  Transmission Date: 20110831
  Serious: Yes (Hospitalization, Other)
  Sender: FDA-Public Use
  Company Number: US-BAYER-201028687NA

PATIENT
  Sex: Female
  Weight: 100 kg

DRUGS (9)
  1. TRIAMCINOLONE ACETONIDE [Concomitant]
  2. YAZ [Suspect]
     Indication: MENSTRUAL DISORDER
  3. YAZ [Suspect]
     Indication: CONTRACEPTION
     Dosage: UNK
     Dates: start: 20061219, end: 20100201
  4. LEVOTHYROXINE SODIUM [Concomitant]
     Dosage: 100 UNK, UNK
  5. YAZ [Suspect]
     Indication: MENSTRUATION IRREGULAR
  6. YAZ [Suspect]
     Indication: DYSMENORRHOEA
  7. BENZACLIN [Concomitant]
  8. SPIRONOLACTONE [Concomitant]
     Indication: HIRSUTISM
     Dosage: UNK
     Dates: start: 20060101, end: 20080101
  9. IBUPROFEN [Concomitant]

REACTIONS (4)
  - PAIN IN EXTREMITY [None]
  - DEEP VEIN THROMBOSIS [None]
  - PULMONARY EMBOLISM [None]
  - CHEST PAIN [None]
